FAERS Safety Report 19052441 (Version 1)
Quarter: 2021Q1

REPORT INFORMATION
  Report Type: Report from Study
  Country: BR (occurrence: BR)
  Receive Date: 20210324
  Receipt Date: 20210324
  Transmission Date: 20210420
  Serious: Yes (Other)
  Sender: FDA-Public Use
  Company Number: BR-BIOGEN-2021BI00992211

PATIENT
  Age: 33 Year
  Sex: Female

DRUGS (6)
  1. AVONEX PEN [Suspect]
     Active Substance: INTERFERON BETA-1A
     Indication: MULTIPLE SCLEROSIS
     Route: 030
     Dates: start: 2007, end: 2009
  2. AVONEX PEN [Suspect]
     Active Substance: INTERFERON BETA-1A
  3. VITAMIN C [Concomitant]
     Active Substance: ASCORBIC ACID
     Indication: MULTIPLE SCLEROSIS
     Route: 065
  4. AVONEX PEN [Suspect]
     Active Substance: INTERFERON BETA-1A
     Route: 030
     Dates: start: 201011
  5. AVONEX PEN [Suspect]
     Active Substance: INTERFERON BETA-1A
  6. ADDERA D3 (CHOLECALCIFEROL) [Concomitant]
     Indication: MULTIPLE SCLEROSIS
     Route: 065

REACTIONS (3)
  - Caesarean section [Recovered/Resolved]
  - Maternal exposure during pregnancy [Recovered/Resolved]
  - Hypoprolactinaemia [Recovered/Resolved]

NARRATIVE: CASE EVENT DATE: 2009
